FAERS Safety Report 19859126 (Version 1)
Quarter: 2021Q3

REPORT INFORMATION
  Report Type: Spontaneous
  Country: CA (occurrence: CA)
  Receive Date: 20210921
  Receipt Date: 20210921
  Transmission Date: 20211014
  Serious: Yes (Hospitalization, Other)
  Sender: FDA-Public Use
  Company Number: CA-JNJFOC-20210927692

PATIENT
  Age: 57 Year
  Sex: Female

DRUGS (9)
  1. SEPTRA [Suspect]
     Active Substance: SULFAMETHOXAZOLE\TRIMETHOPRIM
     Indication: PRODUCT USED FOR UNKNOWN INDICATION
     Route: 065
  2. INFLIXIMAB, RECOMBINANT [Suspect]
     Active Substance: INFLIXIMAB
     Route: 042
  3. AZATHIOPRINE. [Concomitant]
     Active Substance: AZATHIOPRINE
     Indication: PRODUCT USED FOR UNKNOWN INDICATION
     Route: 065
  4. HUMIRA [Concomitant]
     Active Substance: ADALIMUMAB
     Indication: PRODUCT USED FOR UNKNOWN INDICATION
     Route: 065
  5. INFLIXIMAB, RECOMBINANT [Suspect]
     Active Substance: INFLIXIMAB
     Indication: COLITIS ULCERATIVE
     Route: 042
  6. MEPRON [METHYLPREDNISOLONE] [Suspect]
     Active Substance: METHYLPREDNISOLONE
     Indication: PRODUCT USED FOR UNKNOWN INDICATION
     Route: 065
  7. DIPHENHYDRAMINE. [Concomitant]
     Active Substance: DIPHENHYDRAMINE
     Indication: PRODUCT USED FOR UNKNOWN INDICATION
     Route: 065
  8. FOLIC ACID. [Concomitant]
     Active Substance: FOLIC ACID
     Indication: PRODUCT USED FOR UNKNOWN INDICATION
     Route: 065
  9. HYDROCORTISONE. [Concomitant]
     Active Substance: HYDROCORTISONE
     Indication: PRODUCT USED FOR UNKNOWN INDICATION
     Route: 065

REACTIONS (24)
  - Oxygen saturation decreased [Unknown]
  - Urinary tract infection [Unknown]
  - Bursitis infective [Unknown]
  - Cellulitis [Unknown]
  - Condition aggravated [Unknown]
  - Drug hypersensitivity [Unknown]
  - Nephrolithiasis [Unknown]
  - Heart rate abnormal [Unknown]
  - Oropharyngeal pain [Unknown]
  - Chest pain [Unknown]
  - Pyrexia [Unknown]
  - Arrhythmia [Unknown]
  - Pain in extremity [Unknown]
  - Bowel movement irregularity [Unknown]
  - Decreased appetite [Unknown]
  - Cough [Unknown]
  - Pain [Unknown]
  - Diabetes mellitus [Unknown]
  - Spinal stenosis [Unknown]
  - Weight increased [Unknown]
  - Listeria sepsis [Unknown]
  - Arthralgia [Unknown]
  - Vomiting [Unknown]
  - Nausea [Unknown]
